FAERS Safety Report 4534254-8 (Version None)
Quarter: 2004Q4

REPORT INFORMATION
  Report Type: 
  Country: None (occurrence: None)
  Receive Date: 20041214
  Receipt Date: 20040827
  Transmission Date: 20050328
  Serious: No
  Sender: FDA-Public Use
  Company Number: 2004232250US

PATIENT
  Age: 81 Year
  Sex: Female
  Weight: 53.1 kg

DRUGS (5)
  1. BEXTRA [Suspect]
     Indication: PAIN
     Dosage: 20 MG QD ORAL
     Route: 048
  2. NORVASC [Concomitant]
  3. HORMONES [Concomitant]
  4. ANTIDEPRESSANT [Concomitant]
  5. VITAMIN [Concomitant]

REACTIONS (1)
  - OSTEOARTHRITIS [None]
